FAERS Safety Report 12397007 (Version 1)
Quarter: 2016Q2

REPORT INFORMATION
  Report Type: Spontaneous
  Country: US (occurrence: US)
  Receive Date: 20160524
  Receipt Date: 20160524
  Transmission Date: 20160815
  Serious: No
  Sender: FDA-Public Use
  Company Number: US-BIOGEN-2016BI00222464

PATIENT

DRUGS (1)
  1. TYSABRI [Suspect]
     Active Substance: NATALIZUMAB
     Indication: MULTIPLE SCLEROSIS
     Route: 065

REACTIONS (6)
  - Pain [Unknown]
  - Headache [Unknown]
  - Asthenia [Unknown]
  - Alopecia [Unknown]
  - Drug specific antibody present [Unknown]
  - Musculoskeletal stiffness [Unknown]
